FAERS Safety Report 4638796-6 (Version None)
Quarter: 2005Q2

REPORT INFORMATION
  Report Type: 
  Country: None (occurrence: None)
  Receive Date: 20050419
  Receipt Date: 20050407
  Transmission Date: 20051028
  Serious: Yes (Hospitalization)
  Sender: FDA-Public Use
  Company Number: 200511262FR

PATIENT
  Age: 54 Year
  Sex: Male

DRUGS (3)
  1. PYOSTACINE [Suspect]
     Indication: BRONCHITIS
     Route: 048
     Dates: start: 20041118, end: 20041126
  2. KETEK [Suspect]
     Indication: BRONCHITIS
     Route: 048
     Dates: start: 20041029, end: 20041118
  3. AUGMENTIN '125' [Suspect]
     Indication: BRONCHITIS
     Route: 048
     Dates: start: 20041126, end: 20041203

REACTIONS (5)
  - ACUTE RESPIRATORY DISTRESS SYNDROME [None]
  - DRUG RASH WITH EOSINOPHILIA AND SYSTEMIC SYMPTOMS [None]
  - EOSINOPHILIA [None]
  - GENERALISED ERYTHEMA [None]
  - HYPERSENSITIVITY [None]
